FAERS Safety Report 7618254-7 (Version None)
Quarter: 2011Q3

REPORT INFORMATION
  Report Type: 
  Country: None (occurrence: None)
  Receive Date: 20110718
  Receipt Date: 20110708
  Transmission Date: 20111222
  Serious: Yes (Death)
  Sender: FDA-Public Use
  Company Number: CN-GLAXOSMITHKLINE-B0732678A

PATIENT
  Sex: Female
  Weight: 51.5 kg

DRUGS (4)
  1. DOCETAXEL [Concomitant]
     Indication: CHEMOTHERAPY
     Dosage: 100MG PER DAY
     Dates: end: 20110429
  2. PACLITAXEL [Concomitant]
     Indication: OVARIAN CANCER
     Dosage: 135MGM2 PER DAY
     Route: 042
     Dates: start: 20110627, end: 20110627
  3. HYCAMTIN [Suspect]
     Indication: OVARIAN CANCER
     Dosage: 2MG PER DAY
     Route: 042
     Dates: start: 20110627, end: 20110630
  4. CISPLATIN [Concomitant]
     Indication: CHEMOTHERAPY
     Dosage: 20MG PER DAY
     Dates: end: 20110429

REACTIONS (4)
  - HYPERPYREXIA [None]
  - DYSPNOEA [None]
  - CHEST DISCOMFORT [None]
  - NEUTROPHIL COUNT DECREASED [None]
